FAERS Safety Report 16070999 (Version 1)
Quarter: 2019Q1

REPORT INFORMATION
  Report Type: Spontaneous
  Country: FR (occurrence: FR)
  Receive Date: 20190314
  Receipt Date: 20190314
  Transmission Date: 20190418
  Serious: Yes (Other)
  Sender: FDA-Public Use
  Company Number: FR-ACCORD-112705

PATIENT
  Age: 55 Year
  Sex: Male
  Weight: 80 kg

DRUGS (16)
  1. CAMPTO [Suspect]
     Active Substance: IRINOTECAN
     Indication: COLORECTAL ADENOCARCINOMA
     Route: 041
     Dates: start: 20170523
  2. DOXYCYCLINE. [Concomitant]
     Active Substance: DOXYCYCLINE
     Route: 048
     Dates: start: 20170524
  3. ERBITUX [Suspect]
     Active Substance: CETUXIMAB
     Indication: COLORECTAL ADENOCARCINOMA
     Route: 041
     Dates: start: 20170523
  4. FLUOROURACIL. [Suspect]
     Active Substance: FLUOROURACIL
     Indication: COLORECTAL ADENOCARCINOMA
     Route: 041
     Dates: start: 20170523
  5. ZOPHREN [Concomitant]
     Active Substance: ONDANSETRON
     Dosage: STRENGTH: 8 MG
     Route: 048
     Dates: start: 20170524
  6. PRIMPERAN [Concomitant]
     Active Substance: METOCLOPRAMIDE HYDROCHLORIDE
     Route: 048
     Dates: start: 20170524
  7. IMODIUM [Concomitant]
     Active Substance: LOPERAMIDE HYDROCHLORIDE
     Dosage: STRENGTH: 2 MG
     Route: 048
     Dates: start: 20170524
  8. POLARAMINE [Concomitant]
     Active Substance: DEXCHLORPHENIRAMINE MALEATE
     Dosage: STRENGTH: 5 MG/1 ML
     Route: 041
     Dates: start: 20180523
  9. EMEND [Concomitant]
     Active Substance: APREPITANT
     Route: 048
     Dates: start: 20170524
  10. ELVORINE [Concomitant]
     Active Substance: LEUCOVORIN CALCIUM
     Indication: COLORECTAL ADENOCARCINOMA
     Route: 041
     Dates: start: 20180523
  11. EMEND [Concomitant]
     Active Substance: APREPITANT
     Dosage: 125 MG ON DAY 1, 80 MG ON DAY 2 AND DAY 3, ALSO RECEIVED FROM 24-MAY-2017.
     Route: 048
     Dates: start: 20170524, end: 201709
  12. ZOPHREN [Concomitant]
     Active Substance: ONDANSETRON
     Route: 041
     Dates: start: 20180523
  13. INNOHEP [Concomitant]
     Active Substance: TINZAPARIN SODIUM
     Route: 058
     Dates: start: 20171002
  14. SOLU-MEDROL [Concomitant]
     Active Substance: METHYLPREDNISOLONE SODIUM SUCCINATE
     Route: 040
     Dates: start: 20180523
  15. TIORFAN [Concomitant]
     Active Substance: RACECADOTRIL
     Dosage: STRENGTH: 100 MG
     Route: 048
     Dates: start: 20170622
  16. TRAMADOL. [Concomitant]
     Active Substance: TRAMADOL
     Route: 048
     Dates: start: 20170616

REACTIONS (2)
  - Generalised tonic-clonic seizure [Recovered/Resolved]
  - Hypomagnesaemia [Not Recovered/Not Resolved]

NARRATIVE: CASE EVENT DATE: 20180829
